FAERS Safety Report 14201920 (Version 1)
Quarter: 2017Q4

REPORT INFORMATION
  Report Type: Spontaneous
  Country: US (occurrence: US)
  Receive Date: 20171117
  Receipt Date: 20171117
  Transmission Date: 20180321
  Serious: No
  Sender: FDA-Public Use
  Company Number: US-BAYER-2017-220284

PATIENT
  Age: 37 Year
  Sex: Female

DRUGS (1)
  1. MIRENA [Suspect]
     Active Substance: LEVONORGESTREL
     Indication: CONTRACEPTION
     Dosage: 20 MCG/24HR, CONT
     Route: 015
     Dates: start: 20171109, end: 20171109

REACTIONS (4)
  - Uterine stenosis [None]
  - Complication of device insertion [None]
  - Expired device used [None]
  - Procedural pain [None]

NARRATIVE: CASE EVENT DATE: 20171109
